FAERS Safety Report 5950489-1 (Version None)
Quarter: 2008Q4

REPORT INFORMATION
  Report Type: 
  Country: None (occurrence: None)
  Receive Date: 20081112
  Receipt Date: 20081103
  Transmission Date: 20090506
  Serious: Yes (Hospitalization)
  Sender: FDA-Public Use
  Company Number: US-AMGEN-US317001

PATIENT
  Sex: Male

DRUGS (19)
  1. SENSIPAR [Suspect]
     Indication: HYPERPARATHYROIDISM SECONDARY
     Route: 065
     Dates: start: 20080225
  2. ARANESP [Concomitant]
     Indication: RENAL FAILURE CHRONIC
     Route: 065
  3. ACYCLOVIR [Concomitant]
     Route: 065
  4. AZATHIOPRINE [Concomitant]
     Route: 065
  5. DULCOLAX [Concomitant]
     Route: 065
  6. CITALOPRAM HYDROBROMIDE [Concomitant]
     Route: 065
  7. CLONIDINE [Concomitant]
     Route: 061
  8. CYCLOSPORINE [Concomitant]
     Route: 065
  9. FENTANYL [Concomitant]
     Route: 061
  10. FLUCONAZOLE [Concomitant]
     Route: 065
  11. HEPARIN [Concomitant]
     Route: 065
  12. INSULIN GLARGINE [Concomitant]
     Route: 065
  13. LABETALOL HCL [Concomitant]
     Route: 065
  14. INSULIN LISPRO [Concomitant]
     Route: 065
  15. PREVACID [Concomitant]
     Route: 065
  16. LEVOFLOXACIN [Concomitant]
     Route: 065
  17. PREDNISONE TAB [Concomitant]
     Route: 065
  18. SENNA [Concomitant]
     Route: 065
  19. DOMPERIDONE [Concomitant]
     Route: 065

REACTIONS (1)
  - IMPAIRED GASTRIC EMPTYING [None]
